FAERS Safety Report 20051222 (Version 9)
Quarter: 2024Q1

REPORT INFORMATION
  Report Type: Spontaneous
  Country: US (occurrence: US)
  Receive Date: 20211110
  Receipt Date: 20240117
  Transmission Date: 20240410
  Serious: Yes (Other)
  Sender: FDA-Public Use
  Company Number: US-TAKEDA-2021TUS068336

PATIENT
  Age: 45 Year
  Sex: Male
  Weight: 100 kg

DRUGS (20)
  1. VYVANSE [Suspect]
     Active Substance: LISDEXAMFETAMINE DIMESYLATE
     Indication: Attention deficit hyperactivity disorder
     Dosage: 70 MILLIGRAM
     Route: 065
     Dates: end: 202110
  2. VYVANSE [Suspect]
     Active Substance: LISDEXAMFETAMINE DIMESYLATE
     Dosage: 100 MILLIGRAM
     Route: 065
  3. VYVANSE [Suspect]
     Active Substance: LISDEXAMFETAMINE DIMESYLATE
     Dosage: 140 MILLIGRAM
     Route: 065
  4. VYVANSE [Suspect]
     Active Substance: LISDEXAMFETAMINE DIMESYLATE
     Dosage: 240 MILLIGRAM, QD
     Route: 065
  5. VYVANSE [Suspect]
     Active Substance: LISDEXAMFETAMINE DIMESYLATE
     Dosage: 120 MILLIGRAM, Q3HR
     Route: 065
     Dates: start: 2013
  6. VYVANSE [Suspect]
     Active Substance: LISDEXAMFETAMINE DIMESYLATE
     Dosage: 120 MILLIGRAM, BID
     Route: 065
  7. VYVANSE [Suspect]
     Active Substance: LISDEXAMFETAMINE DIMESYLATE
     Dosage: 4 DOSAGE FORM, QD
     Route: 065
  8. VYVANSE [Suspect]
     Active Substance: LISDEXAMFETAMINE DIMESYLATE
     Dosage: 60 MILLIGRAM
     Route: 065
  9. ADDERALL XR [Suspect]
     Active Substance: AMPHETAMINE ASPARTATE\AMPHETAMINE SULFATE\DEXTROAMPHETAMINE SACCHARATE\DEXTROAMPHETAMINE SULFATE
     Indication: Attention deficit hyperactivity disorder
     Dosage: 170 MILLIGRAM
     Route: 065
  10. ADDERALL XR [Suspect]
     Active Substance: AMPHETAMINE ASPARTATE\AMPHETAMINE SULFATE\DEXTROAMPHETAMINE SACCHARATE\DEXTROAMPHETAMINE SULFATE
     Dosage: 50 MILLIGRAM
     Route: 065
  11. ADDERALL XR [Suspect]
     Active Substance: AMPHETAMINE ASPARTATE\AMPHETAMINE SULFATE\DEXTROAMPHETAMINE SACCHARATE\DEXTROAMPHETAMINE SULFATE
     Dosage: 120 MILLIGRAM
     Route: 065
  12. ADDERALL XR [Suspect]
     Active Substance: AMPHETAMINE ASPARTATE\AMPHETAMINE SULFATE\DEXTROAMPHETAMINE SACCHARATE\DEXTROAMPHETAMINE SULFATE
     Dosage: 500 MILLIGRAM, QD
     Route: 065
  13. ADDERALL XR [Suspect]
     Active Substance: AMPHETAMINE ASPARTATE\AMPHETAMINE SULFATE\DEXTROAMPHETAMINE SACCHARATE\DEXTROAMPHETAMINE SULFATE
     Dosage: 80 MILLIGRAM
     Route: 065
  14. MYDAYIS [Suspect]
     Active Substance: AMPHETAMINE ASPARTATE\AMPHETAMINE SULFATE\DEXTROAMPHETAMINE SACCHARATE\DEXTROAMPHETAMINE SULFATE
     Indication: Product used for unknown indication
     Dosage: UNK
     Route: 065
  15. DEXTROAMPHETAMINE [Suspect]
     Active Substance: DEXTROAMPHETAMINE
     Indication: Attention deficit hyperactivity disorder
     Dosage: 70 MILLIGRAM
     Route: 065
     Dates: start: 2021
  16. ATENOLOL [Concomitant]
     Active Substance: ATENOLOL
     Dosage: UNK
     Route: 065
  17. LOSARTAN [Concomitant]
     Active Substance: LOSARTAN
     Indication: Blood pressure increased
     Dosage: UNK
     Route: 065
  18. GABAPENTIN [Concomitant]
     Active Substance: GABAPENTIN
     Dosage: UNK
     Route: 065
  19. DEXEDRINE [Concomitant]
     Active Substance: DEXTROAMPHETAMINE SULFATE
     Dosage: UNK
     Route: 065
  20. XANAX [Concomitant]
     Active Substance: ALPRAZOLAM
     Indication: Anxiety
     Dosage: UNK
     Route: 065

REACTIONS (51)
  - Spinal fracture [Unknown]
  - Bipolar disorder [Unknown]
  - Near death experience [Unknown]
  - Drug dependence [Unknown]
  - Hallucination [Unknown]
  - Fear of death [Unknown]
  - Disorganised speech [Unknown]
  - Polydipsia [Unknown]
  - Road traffic accident [Unknown]
  - Stress [Unknown]
  - Disturbance in attention [Unknown]
  - Therapeutic product effect incomplete [Unknown]
  - Full blood count decreased [Unknown]
  - Blood pressure decreased [Unknown]
  - Drug level decreased [Unknown]
  - Alcohol use [Unknown]
  - Memory impairment [Unknown]
  - Cognitive disorder [Unknown]
  - Affective disorder [Unknown]
  - Emotional disorder [Unknown]
  - Asthenia [Unknown]
  - Therapeutic response shortened [Unknown]
  - Panic attack [Unknown]
  - Cerebral disorder [Unknown]
  - Impaired quality of life [Unknown]
  - Treatment failure [Unknown]
  - Drug ineffective [Unknown]
  - Product label issue [Unknown]
  - Sleep deficit [Unknown]
  - Drug intolerance [Unknown]
  - Heart rate decreased [Unknown]
  - Feeling abnormal [Unknown]
  - General physical health deterioration [Unknown]
  - Inability to afford medication [Unknown]
  - Paraesthesia [Unknown]
  - Weight decreased [Unknown]
  - Hypertension [Unknown]
  - Constipation [Unknown]
  - Anxiety [Unknown]
  - Blood pressure increased [Unknown]
  - Drug tolerance [Unknown]
  - Dry mouth [Unknown]
  - Depression [Unknown]
  - Psychotic disorder [Unknown]
  - Dysphoria [Unknown]
  - Insomnia [Unknown]
  - Diarrhoea [Unknown]
  - Product use issue [Unknown]
  - Intentional overdose [Unknown]
  - Product prescribing error [Unknown]
  - Inappropriate schedule of product administration [Unknown]

NARRATIVE: CASE EVENT DATE: 20190726
